FAERS Safety Report 5197557-2 (Version None)
Quarter: 2006Q4

REPORT INFORMATION
  Report Type: 
  Country: None (occurrence: None)
  Receive Date: 20061228
  Receipt Date: 20061218
  Transmission Date: 20070319
  Serious: Yes (Other)
  Sender: FDA-Public Use
  Company Number: B0451458A

PATIENT
  Sex: Female

DRUGS (2)
  1. AMOXICILLIN TRIHYDRATE (GENERIC) (AMOXICILLIN) [Suspect]
  2. ACETAMINOPHEN [Suspect]

REACTIONS (10)
  - CHOLESTASIS [None]
  - ERYTHEMA MULTIFORME [None]
  - HEPATOMEGALY [None]
  - HEPATOTOXICITY [None]
  - HYPERCHOLESTEROLAEMIA [None]
  - JAUNDICE [None]
  - PURPURA [None]
  - SKIN EXFOLIATION [None]
  - VANISHING BILE DUCT SYNDROME [None]
  - VIRAL INFECTION [None]
